FAERS Safety Report 20003694 (Version 2)
Quarter: 2021Q4

REPORT INFORMATION
  Report Type: Spontaneous
  Country: US (occurrence: US)
  Receive Date: 20211028
  Receipt Date: 20211103
  Transmission Date: 20220304
  Serious: Yes (Other)
  Sender: FDA-Public Use
  Company Number: US-AUROBINDO-AUR-APL-2021-042486

PATIENT
  Age: 24 Year
  Weight: 101 kg

DRUGS (1)
  1. ETOMIDATE [Suspect]
     Active Substance: ETOMIDATE
     Indication: Mental disorder
     Dosage: ONE TIME DOSE (ADMINISTERED AS SINGLE BOLUS DOSE)
     Route: 042
     Dates: start: 20211006, end: 20211006

REACTIONS (2)
  - Seizure [Recovered/Resolved]
  - Product use in unapproved indication [Unknown]

NARRATIVE: CASE EVENT DATE: 20211006
